FAERS Safety Report 8774793 (Version 1)
Quarter: 2012Q4

REPORT INFORMATION
  Report Type: 
  Country: US (occurrence: US)
  Receive Date: 20120910
  Receipt Date: 20120910
  Transmission Date: 20130627
  Serious: No
  Sender: FDA-Public Use
  Company Number: US-PFIZER INC-2012217530

PATIENT
  Age: 77 Year
  Sex: Female

DRUGS (1)
  1. XALKORI [Suspect]
     Indication: TRACHEAL CANCER
     Dosage: 250 mg, 2x/day
     Route: 048
     Dates: start: 20120831

REACTIONS (3)
  - Nausea [Unknown]
  - Vomiting [Unknown]
  - Diarrhoea [Unknown]
